FAERS Safety Report 6196895-4 (Version None)
Quarter: 2009Q2

REPORT INFORMATION
  Report Type: 
  Country: None (occurrence: None)
  Receive Date: 20090520
  Receipt Date: 20090512
  Transmission Date: 20091009
  Serious: No
  Sender: FDA-Public Use
  Company Number: US-B.I. PHARMACEUTICALS,INC./RIDGEFIELD-2009-BP-05893BP

PATIENT

DRUGS (1)
  1. CLONIDINE HCL [Suspect]
     Indication: BLOOD PRESSURE

REACTIONS (2)
  - BLOOD PRESSURE ABNORMAL [None]
  - VISION BLURRED [None]
